FAERS Safety Report 4481038-5 (Version None)
Quarter: 2004Q3

REPORT INFORMATION
  Report Type: 
  Country: None (occurrence: None)
  Receive Date: 20040923
  Receipt Date: 20040811
  Transmission Date: 20050211
  Serious: No
  Sender: FDA-Public Use
  Company Number: USA030845133

PATIENT
  Age: 79 Year
  Sex: Female
  Weight: 43 kg

DRUGS (3)
  1. FORTEO [Suspect]
     Indication: OSTEOPOROSIS
     Dosage: 20 UG DAY
     Dates: start: 20030606, end: 20040201
  2. BENCAR (OLEMSARTAN MEDOXIMOL) [Concomitant]
  3. COVERA-HS [Concomitant]

REACTIONS (6)
  - ARTHRALGIA [None]
  - ASTHENIA [None]
  - GASTROINTESTINAL DISORDER [None]
  - HYPERCHLORHYDRIA [None]
  - INSOMNIA [None]
  - NAIL DISORDER [None]
